FAERS Safety Report 8126026-2 (Version None)
Quarter: 2012Q1

REPORT INFORMATION
  Report Type: 
  Country: None (occurrence: None)
  Receive Date: 20120209
  Receipt Date: 20120208
  Transmission Date: 20120608
  Serious: Yes (Death)
  Sender: FDA-Public Use
  Company Number: CO-B.I. PHARMACEUTICALS,INC./RIDGEFIELD-2012-RA-00021RA

PATIENT
  Age: 92 Year
  Sex: Male

DRUGS (2)
  1. PRADAXA [Suspect]
     Indication: ATRIAL FIBRILLATION
  2. PRADAXA [Suspect]
     Indication: CEREBROVASCULAR ACCIDENT PROPHYLAXIS
     Dosage: 220 MG
     Route: 048
     Dates: start: 20110801

REACTIONS (7)
  - SYNCOPE [None]
  - NEUROLOGICAL DECOMPENSATION [None]
  - CARDIO-RESPIRATORY ARREST [None]
  - EPISTAXIS [None]
  - HEPATIC ENZYME ABNORMAL [None]
  - FACE INJURY [None]
  - SKELETAL INJURY [None]
